FAERS Safety Report 6203965-0 (Version None)
Quarter: 2009Q2

REPORT INFORMATION
  Report Type: 
  Country: None (occurrence: None)
  Receive Date: 20090527
  Receipt Date: 20090519
  Transmission Date: 20091009
  Serious: Yes (Hospitalization)
  Sender: FDA-Public Use
  Company Number: B0570873A

PATIENT
  Sex: Female

DRUGS (6)
  1. RELENZA [Suspect]
     Indication: INFLUENZA
     Dosage: 10MG TWICE PER DAY
     Route: 055
     Dates: start: 20090307
  2. MEDICON [Concomitant]
     Indication: COUGH
     Dosage: 45MG PER DAY
     Route: 048
     Dates: start: 20090307, end: 20090313
  3. MUCODYNE [Concomitant]
     Indication: PRODUCTIVE COUGH
     Route: 048
     Dates: start: 20090307, end: 20090313
  4. LOXONIN [Concomitant]
     Route: 048
  5. EBASTEL [Concomitant]
     Dosage: 5MG PER DAY
     Route: 048
     Dates: start: 20090307, end: 20090320
  6. SINGULAIR [Concomitant]
     Indication: ASTHMA
     Dosage: 5MG PER DAY
     Route: 048

REACTIONS (4)
  - ABDOMINAL DISTENSION [None]
  - ABDOMINAL PAIN [None]
  - FLATULENCE [None]
  - GASTROINTESTINAL HYPOMOTILITY [None]
